FAERS Safety Report 16598655 (Version 7)
Quarter: 2019Q3

REPORT INFORMATION
  Report Type: Report from Study
  Country: KR (occurrence: KR)
  Receive Date: 20190719
  Receipt Date: 20190820
  Transmission Date: 20191004
  Serious: Yes (Death, Hospitalization)
  Sender: FDA-Public Use
  Company Number: KR-ROCHE-2353976

PATIENT
  Age: 67 Year
  Sex: Male
  Weight: 64.3 kg

DRUGS (29)
  1. CALCIUM CARBONATE;COLECALCIFEROL [Concomitant]
     Active Substance: CALCIUM CARBONATE\CHOLECALCIFEROL
     Route: 065
     Dates: start: 20190226
  2. STILNOX [Concomitant]
     Active Substance: ZOLPIDEM TARTRATE
     Indication: INSOMNIA
     Route: 065
     Dates: start: 20190813
  3. TANTUM [BENZYDAMINE HYDROCHLORIDE] [Concomitant]
     Route: 065
     Dates: start: 20180703
  4. MOTILITONE [Concomitant]
     Active Substance: HERBALS
     Indication: DYSPEPSIA
     Route: 048
     Dates: start: 20180813
  5. STILNOX [Concomitant]
     Active Substance: ZOLPIDEM TARTRATE
     Indication: INSOMNIA
     Route: 048
     Dates: start: 20180818
  6. NYSTATIN. [Concomitant]
     Active Substance: NYSTATIN
     Route: 048
     Dates: start: 20180824
  7. ULCERLMIN [Concomitant]
     Active Substance: SUCRALFATE
     Indication: GASTROOESOPHAGEAL REFLUX DISEASE
     Route: 048
     Dates: start: 20181217
  8. TAZOPERAN [Concomitant]
     Route: 065
     Dates: start: 20190813
  9. TRIDOL [Concomitant]
     Active Substance: TRAMADOL HYDROCHLORIDE
     Route: 065
     Dates: start: 20190813
  10. MORPHINE SULFATE. [Concomitant]
     Active Substance: MORPHINE SULFATE
     Route: 065
     Dates: start: 20190813
  11. LYRICA [Concomitant]
     Active Substance: PREGABALIN
     Route: 065
     Dates: start: 20190813
  12. K-CONTIN [Concomitant]
     Route: 065
     Dates: start: 20190813
  13. DUPHALAC EASY [Concomitant]
     Indication: CONSTIPATION
     Route: 048
     Dates: start: 20180725
  14. XGEVA [Concomitant]
     Active Substance: DENOSUMAB
     Route: 065
     Dates: start: 20190226
  15. PLASMA SOLUTION A [Concomitant]
     Route: 065
     Dates: start: 20190813
  16. ERDOS [Concomitant]
     Active Substance: ERDOSTEINE
     Indication: PRODUCTIVE COUGH
     Route: 048
     Dates: start: 20180828
  17. PERIDEX [CHLORHEXIDINE GLUCONATE] [Concomitant]
     Indication: STOMATITIS
     Route: 065
     Dates: start: 20190306
  18. ATEZOLIZUMAB. [Suspect]
     Active Substance: ATEZOLIZUMAB
     Indication: NON-SMALL CELL LUNG CANCER METASTATIC
     Dosage: MOST RECENT DOSE OF ATEZOLIZUMAB 840 MG ON 02/JUL/2019
     Route: 042
     Dates: start: 20181226
  19. COBIMETINIB. [Suspect]
     Active Substance: COBIMETINIB
     Indication: NON-SMALL CELL LUNG CANCER METASTATIC
     Dosage: MOST RECENT DOSE OF COBIMETINIB 60 MG ON 08/JUL/2019
     Route: 048
     Dates: start: 20181226
  20. GELMA [Concomitant]
     Route: 048
     Dates: start: 20181226
  21. ULTRACET ER SEMI [Concomitant]
     Indication: TUMOUR PAIN
     Route: 048
     Dates: start: 20181217
  22. FREAMINE III NOS [Concomitant]
     Active Substance: AMINO ACIDS
     Route: 065
     Dates: start: 20190702, end: 20190702
  23. TYLENOL ER [Concomitant]
     Active Substance: ACETAMINOPHEN
     Route: 065
     Dates: start: 20190813
  24. MAGNESIUM OXIDE. [Concomitant]
     Active Substance: MAGNESIUM OXIDE
     Indication: CONSTIPATION
     Route: 048
     Dates: start: 20180703
  25. FREAMINE III NOS [Concomitant]
     Active Substance: AMINO ACIDS
     Route: 065
     Dates: start: 20190717, end: 20190717
  26. MONOLITUM FLAS [Concomitant]
     Indication: PROPHYLAXIS
     Route: 065
     Dates: start: 20190716
  27. ACYCLOVIR [ACICLOVIR] [Concomitant]
     Active Substance: ACYCLOVIR
     Indication: HERPES ZOSTER
     Route: 065
     Dates: start: 20190724, end: 20190728
  28. MEGACE [Concomitant]
     Active Substance: MEGESTROL ACETATE
     Indication: HYPOPHAGIA
     Route: 048
     Dates: start: 20180703
  29. ESOMEPRAZOLE. [Concomitant]
     Active Substance: ESOMEPRAZOLE MAGNESIUM
     Indication: GASTROOESOPHAGEAL REFLUX DISEASE
     Route: 048
     Dates: start: 20180824

REACTIONS (1)
  - Cardiac failure [Recovering/Resolving]

NARRATIVE: CASE EVENT DATE: 20190710
